FAERS Safety Report 8805816 (Version 1)
Quarter: 2012Q4

REPORT INFORMATION
  Report Type: Report from Study
  Country: US (occurrence: US)
  Receive Date: 20120925
  Receipt Date: 20120925
  Transmission Date: 20130627
  Serious: No
  Sender: FDA-Public Use
  Company Number: US-009507513-1209USA008818

PATIENT
  Sex: Female
  Weight: 65.76 kg

DRUGS (1)
  1. IMPLANON [Suspect]
     Dosage: UNK, Unknown
     Dates: start: 20101020, end: 20120820

REACTIONS (2)
  - Menstruation irregular [Unknown]
  - Headache [Unknown]
